FAERS Safety Report 12489773 (Version 1)
Quarter: 2016Q2

REPORT INFORMATION
  Report Type: Spontaneous
  Country: GB (occurrence: GB)
  Receive Date: 20160622
  Receipt Date: 20160622
  Transmission Date: 20160815
  Serious: Yes (Hospitalization, Other)
  Sender: FDA-Public Use
  Company Number: GB-GLAXOSMITHKLINE-B0359804A

PATIENT
  Age: 55 Year
  Sex: Female

DRUGS (15)
  1. DOMPERIDONE [Concomitant]
     Active Substance: DOMPERIDONE
     Dosage: UNK
     Dates: start: 200609
  2. SEROXAT [Suspect]
     Active Substance: PAROXETINE HYDROCHLORIDE
     Dosage: 20 MG, QD
     Route: 065
     Dates: start: 19990208, end: 20000411
  3. PAROXETINE. [Suspect]
     Active Substance: PAROXETINE
     Indication: PRODUCT USED FOR UNKNOWN INDICATION
     Dosage: 20 MG, QD
     Route: 065
     Dates: start: 20000411, end: 20041207
  4. DULOXETINE. [Concomitant]
     Active Substance: DULOXETINE
     Dosage: UNK
     Route: 065
  5. SIMVASTATIN. [Concomitant]
     Active Substance: SIMVASTATIN
     Dosage: UNK
     Dates: start: 200603
  6. PAROXETINE. [Suspect]
     Active Substance: PAROXETINE
     Indication: PRODUCT USED FOR UNKNOWN INDICATION
     Dosage: 10MG/5ML
     Route: 065
     Dates: start: 20001110
  7. REBOXETINE [Concomitant]
     Active Substance: REBOXETINE
     Dosage: UNK
     Dates: start: 20020524
  8. LUSTRAL [Concomitant]
     Active Substance: SERTRALINE HYDROCHLORIDE
     Dosage: UNK
     Route: 065
     Dates: start: 20010411
  9. HRT [Concomitant]
     Active Substance: UNSPECIFIED INGREDIENT
     Dosage: UNK
  10. SEROXAT [Suspect]
     Active Substance: PAROXETINE HYDROCHLORIDE
     Indication: PRODUCT USED FOR UNKNOWN INDICATION
     Dosage: UNK
     Route: 065
     Dates: start: 19980526
  11. DIAZEPAM. [Concomitant]
     Active Substance: DIAZEPAM
     Dosage: UNK
     Route: 065
     Dates: start: 20000919
  12. NICOTINE. [Concomitant]
     Active Substance: NICOTINE
     Dosage: UNK
  13. TESTOSTERONE. [Concomitant]
     Active Substance: TESTOSTERONE
     Dosage: UNK
     Dates: start: 20000510, end: 200011
  14. SERTRALINE [Concomitant]
     Active Substance: SERTRALINE HYDROCHLORIDE
     Dosage: UNK
  15. ESOMEPRAZOLE [Concomitant]
     Active Substance: ESOMEPRAZOLE
     Dosage: UNK
     Dates: start: 200609

REACTIONS (18)
  - Self-injurious ideation [Unknown]
  - Irritability [Unknown]
  - Insomnia [Unknown]
  - Depression [Unknown]
  - Aggression [Unknown]
  - Anger [Unknown]
  - Depressed mood [Unknown]
  - Abnormal behaviour [Unknown]
  - Gastrooesophageal reflux disease [Unknown]
  - Feelings of worthlessness [Unknown]
  - Loss of libido [Unknown]
  - Fatigue [Unknown]
  - Withdrawal syndrome [Unknown]
  - Nervousness [Unknown]
  - Tension headache [Unknown]
  - Anxiety [Unknown]
  - Dizziness [Unknown]
  - Suicidal ideation [Unknown]

NARRATIVE: CASE EVENT DATE: 200307
